FAERS Safety Report 4684579-0 (Version None)
Quarter: 2005Q2

REPORT INFORMATION
  Report Type: 
  Country: None (occurrence: None)
  Receive Date: 20050531
  Receipt Date: 20050330
  Transmission Date: 20051028
  Serious: Yes (Hospitalization, Other)
  Sender: FDA-Public Use
  Company Number: USA050291129

PATIENT
  Age: 32 Year
  Sex: Male

DRUGS (4)
  1. SYMBYAX [Suspect]
     Indication: BIPOLAR I DISORDER
     Dates: start: 20040820, end: 20050205
  2. ZYPREXA [Suspect]
     Indication: BIPOLAR I DISORDER
     Dosage: 5 MG/1 DAY
     Dates: start: 20040610, end: 20040820
  3. TOPAMAX [Concomitant]
  4. VYTORIN [Concomitant]

REACTIONS (4)
  - MANIA [None]
  - PNEUMONIA [None]
  - PULMONARY EMBOLISM [None]
  - WEIGHT INCREASED [None]
